FAERS Safety Report 11937534 (Version 4)
Quarter: 2019Q2

REPORT INFORMATION
  Report Type: Spontaneous
  Country: CA (occurrence: CA)
  Receive Date: 20160121
  Receipt Date: 20190611
  Transmission Date: 20190711
  Serious: Yes (Hospitalization, Other)
  Sender: FDA-Public Use
  Company Number: CA-ROCHE-1697386

PATIENT
  Age: 34 Year
  Sex: Female

DRUGS (4)
  1. XOLAIR [Suspect]
     Active Substance: OMALIZUMAB
     Route: 058
     Dates: start: 20150921, end: 20150921
  2. XOLAIR [Suspect]
     Active Substance: OMALIZUMAB
     Indication: ASTHMA
     Route: 058
     Dates: start: 20140602
  3. XOLAIR [Suspect]
     Active Substance: OMALIZUMAB
     Route: 058
     Dates: start: 20110526
  4. CORTISONE [Concomitant]
     Active Substance: CORTISONE\HYDROCORTISONE
     Indication: PRODUCT USED FOR UNKNOWN INDICATION
     Route: 065

REACTIONS (18)
  - Wheezing [Unknown]
  - Dust allergy [Unknown]
  - Frustration tolerance decreased [Unknown]
  - Discomfort [Unknown]
  - Dyspnoea [Unknown]
  - Heart rate increased [Unknown]
  - Blood immunoglobulin E increased [Unknown]
  - Sensitivity to weather change [Unknown]
  - Insomnia [Unknown]
  - Neutrophil count increased [Unknown]
  - Perennial allergy [Unknown]
  - Chest discomfort [Unknown]
  - Perfume sensitivity [Unknown]
  - Throat clearing [Unknown]
  - Cough [Unknown]
  - Asthma [Unknown]
  - Lung infection [Unknown]
  - Nasopharyngitis [Unknown]

NARRATIVE: CASE EVENT DATE: 20151214
